FAERS Safety Report 10978627 (Version 5)
Quarter: 2015Q2

REPORT INFORMATION
  Report Type: Report from Study
  Country: CZ (occurrence: CZ)
  Receive Date: 20150402
  Receipt Date: 20150521
  Transmission Date: 20150821
  Serious: Yes (Death, Other)
  Sender: FDA-Public Use
  Company Number: CZ-ABBVIE-15K-217-1369523-00

PATIENT
  Age: 66 Year
  Sex: Male
  Weight: 97 kg

DRUGS (4)
  1. VIGANTOL [Concomitant]
     Indication: OSTEOPOROSIS PROPHYLAXIS
     Dates: start: 20111012, end: 20150114
  2. HUMIRA [Suspect]
     Active Substance: ADALIMUMAB
     Indication: RHEUMATOID ARTHRITIS
     Route: 065
     Dates: start: 20050919, end: 20150113
  3. MEDROL [Concomitant]
     Active Substance: METHYLPREDNISOLONE
     Indication: RHEUMATOID ARTHRITIS
     Route: 048
     Dates: start: 20070829, end: 20150114
  4. CALCICHEW [Concomitant]
     Active Substance: CALCIUM CARBONATE
     Indication: PRODUCT USED FOR UNKNOWN INDICATION
     Route: 048
     Dates: start: 20131017, end: 20150114

REACTIONS (7)
  - Pulmonary amyloidosis [Unknown]
  - Gastrointestinal amyloidosis [Unknown]
  - Circulatory collapse [Fatal]
  - Myocardial fibrosis [Unknown]
  - Cardiogenic shock [Fatal]
  - Cardiac failure [Fatal]
  - Cardiac hypertrophy [Fatal]

NARRATIVE: CASE EVENT DATE: 20150114
